FAERS Safety Report 9303426 (Version 1)
Quarter: 2013Q2

REPORT INFORMATION
  Report Type: Spontaneous
  Country: US (occurrence: None)
  Receive Date: 20130521
  Receipt Date: 20130521
  Transmission Date: 20140414
  Serious: Yes (Other)
  Sender: FDA-Public Use
  Company Number: None

PATIENT
  Age: 70 Year
  Sex: Female
  Weight: 93.44 kg

DRUGS (1)
  1. SIMVASTATIN 10 MG NORTHSTAR RX [Suspect]
     Route: 048
     Dates: start: 2012, end: 2013

REACTIONS (2)
  - Myalgia [None]
  - Arthralgia [None]
